FAERS Safety Report 9135925 (Version 1)
Quarter: 2013Q1

REPORT INFORMATION
  Report Type: Spontaneous
  Country: US (occurrence: US)
  Receive Date: 20130219
  Receipt Date: 20130219
  Transmission Date: 20140127
  Serious: No
  Sender: FDA-Public Use
  Company Number: US-BRISTOL-MYERS SQUIBB COMPANY-17129651

PATIENT
  Age: 53 Year
  Sex: Male
  Weight: 95.69 kg

DRUGS (2)
  1. ABATACEPT SUBQ INJECTION 125MG/ML [Suspect]
     Indication: RHEUMATOID ARTHRITIS
     Dosage: PRESCRIPTION #: 55533933617?1DF:125 MG/ML?FIRST INJECTION:08NOV2012
     Route: 058
  2. PREDNISONE [Concomitant]

REACTIONS (2)
  - Drug ineffective [Unknown]
  - Dizziness [Unknown]
